FAERS Safety Report 7525195-2 (Version None)
Quarter: 2011Q2

REPORT INFORMATION
  Report Type: 
  Country: None (occurrence: None)
  Receive Date: 20110606
  Receipt Date: 20110520
  Transmission Date: 20111010
  Serious: No
  Sender: FDA-Public Use
  Company Number: US-B.I. PHARMACEUTICALS,INC./RIDGEFIELD-2011-BP-13544BP

PATIENT
  Age: 88 Year
  Sex: Female

DRUGS (9)
  1. CALCIUM CARBONATE [Concomitant]
     Indication: OSTEOPOROSIS PROPHYLAXIS
     Route: 048
  2. I VITAMIN [Concomitant]
     Indication: MACULAR DEGENERATION
  3. VICODIN [Concomitant]
     Indication: BACK PAIN
     Route: 048
  4. METOPROLOL TARTRATE [Concomitant]
     Indication: HYPERTENSION
     Dosage: 100 MG
     Route: 048
  5. SERTRALINE HYDROCHLORIDE [Concomitant]
     Indication: DEPRESSION
     Dosage: 25 MG
     Route: 048
  6. FENTANYL [Concomitant]
     Indication: BACK PAIN
     Route: 048
  7. GLIPIZIDE [Concomitant]
     Indication: TYPE 2 DIABETES MELLITUS
     Dosage: 10 MG
     Route: 048
  8. PRADAXA [Suspect]
     Indication: ATRIAL FIBRILLATION
     Dosage: 300 MG
     Route: 048
  9. OMEPRAZOLE [Concomitant]
     Indication: DYSPHAGIA
     Route: 048

REACTIONS (1)
  - HYPERHIDROSIS [None]
